FAERS Safety Report 6965806-3 (Version None)
Quarter: 2010Q3

REPORT INFORMATION
  Report Type: 
  Country: None (occurrence: None)
  Receive Date: 20100903
  Receipt Date: 20100830
  Transmission Date: 20110219
  Serious: Yes (Hospitalization)
  Sender: FDA-Public Use
  Company Number: BR-ROCHE-724271

PATIENT
  Sex: Male
  Weight: 84 kg

DRUGS (3)
  1. RIVOTRIL [Suspect]
     Indication: SLEEP DISORDER THERAPY
     Route: 048
     Dates: end: 20100826
  2. RIVOTRIL [Suspect]
     Dosage: DOSE: 2.5 MG/ML
     Route: 048
     Dates: start: 20100827
  3. CARBOLITIUM [Concomitant]
     Indication: DEPRESSION
     Dates: start: 19980101

REACTIONS (3)
  - DRUG INEFFECTIVE [None]
  - LOSS OF CONSCIOUSNESS [None]
  - NO ADVERSE EVENT [None]
